FAERS Safety Report 4796919-2 (Version None)
Quarter: 2005Q4

REPORT INFORMATION
  Report Type: 
  Country: None (occurrence: None)
  Receive Date: 20051013
  Receipt Date: 20050914
  Transmission Date: 20060501
  Serious: Yes (Other)
  Sender: FDA-Public Use
  Company Number: US-MERCK-0509USA01879

PATIENT
  Age: 67 Year
  Sex: Female
  Weight: 57 kg

DRUGS (2)
  1. FOSAMAX [Suspect]
     Indication: OSTEOPENIA
     Route: 048
     Dates: start: 20040301, end: 20040801
  2. FOSAMAX [Suspect]
     Route: 048
     Dates: start: 20041001, end: 20050701

REACTIONS (4)
  - ARTHRALGIA [None]
  - BONE PAIN [None]
  - CARPAL TUNNEL SYNDROME [None]
  - RETINAL ARTERY OCCLUSION [None]
